FAERS Safety Report 8740506 (Version 2)
Quarter: 2013Q4

REPORT INFORMATION
  Report Type: Spontaneous
  Country: US (occurrence: US)
  Receive Date: 20120823
  Receipt Date: 20131031
  Transmission Date: 20140711
  Serious: No
  Sender: FDA-Public Use
  Company Number: US-009507513-2012SP028640

PATIENT
  Sex: Female
  Weight: 116.55 kg

DRUGS (2)
  1. IMPLANON [Suspect]
     Indication: CONTRACEPTION
  2. VITAMINS (UNSPECIFIED) [Concomitant]
     Dosage: UNK

REACTIONS (4)
  - Menstruation irregular [Unknown]
  - Cholelithiasis [Unknown]
  - Abdominal pain [Unknown]
  - Obesity [Unknown]
